FAERS Safety Report 20847410 (Version 3)
Quarter: 2022Q2

REPORT INFORMATION
  Report Type: Other
  Country: NG (occurrence: None)
  Receive Date: 20220519
  Receipt Date: 20220609
  Transmission Date: 20220720
  Serious: Yes (Death, Hospitalization)
  Sender: FDA-Public Use
  Company Number: NG-ROCHE-3094217

PATIENT
  Age: 54 Year
  Sex: Female
  Weight: 36.320 kg

DRUGS (1)
  1. AVASTIN [Suspect]
     Active Substance: BEVACIZUMAB
     Indication: Ovarian cancer
     Dosage: ONGOING
     Route: 042
     Dates: start: 20220406

REACTIONS (8)
  - Death [Fatal]
  - Transfusion [Recovering/Resolving]
  - Oropharyngeal pain [Not Recovered/Not Resolved]
  - Increased viscosity of bronchial secretion [Not Recovered/Not Resolved]
  - Dyspnoea [Unknown]
  - Dysphagia [Not Recovered/Not Resolved]
  - Decreased appetite [Recovering/Resolving]
  - Insomnia [Not Recovered/Not Resolved]

NARRATIVE: CASE EVENT DATE: 20220506
